FAERS Safety Report 23263564 (Version 1)
Quarter: 2023Q4

REPORT INFORMATION
  Report Type: Spontaneous
  Country: US (occurrence: US)
  Receive Date: 20231205
  Receipt Date: 20231205
  Transmission Date: 20240110
  Serious: Yes (Other)
  Sender: FDA-Public Use
  Company Number: US-PFIZER INC-PV202300194859

PATIENT
  Age: 71 Year
  Sex: Female

DRUGS (2)
  1. SPIRONOLACTONE [Suspect]
     Active Substance: SPIRONOLACTONE
     Dosage: UNK
  2. ENTRESTO [Suspect]
     Active Substance: SACUBITRIL\VALSARTAN
     Dosage: UNK

REACTIONS (7)
  - Foot operation [Unknown]
  - Posterior tibial tendon dysfunction [Unknown]
  - Skin papilloma [Recovered/Resolved]
  - Malaise [Unknown]
  - Allergy to metals [Recovered/Resolved]
  - Immune system disorder [Recovered/Resolved]
  - Heart rate increased [Recovered/Resolved]
